FAERS Safety Report 5772957-8 (Version None)
Quarter: 2008Q2

REPORT INFORMATION
  Report Type: 
  Country: None (occurrence: None)
  Receive Date: 20080610
  Receipt Date: 20080529
  Transmission Date: 20081010
  Serious: Yes (Death, Hospitalization, Other)
  Sender: FDA-Public Use
  Company Number: GXKR2008US04893

PATIENT
  Age: 19 Year
  Sex: Female

DRUGS (6)
  1. CYCLOSPORINE [Suspect]
     Indication: IMMUNOSUPPRESSION
  2. PREDNISONE [Suspect]
     Indication: IMMUNOSUPPRESSION
     Dosage: 1.5 MG/KG
  3. METHOTREXATE [Suspect]
     Indication: PROPHYLAXIS AGAINST GRAFT VERSUS HOST DISEASE
  4. CYCLOPHOSPHAMIDE [Suspect]
     Indication: ACUTE MYELOID LEUKAEMIA
  5. CORTICOSTEROIDS (NO INGREDIENTS/SUBSTANCES) [Suspect]
     Indication: PROPHYLAXIS AGAINST GRAFT VERSUS HOST DISEASE
  6. RADIATION THERAPY (NO INGREDIENTS/SUBSTANCES) [Concomitant]

REACTIONS (7)
  - ABDOMINAL PAIN [None]
  - BLOOD SODIUM DECREASED [None]
  - CONSTIPATION [None]
  - CONVULSION [None]
  - HEPATIC FAILURE [None]
  - HERPES ZOSTER [None]
  - HYPONATRAEMIA [None]
